FAERS Safety Report 5611324-4 (Version None)
Quarter: 2008Q1

REPORT INFORMATION
  Report Type: 
  Country: None (occurrence: None)
  Receive Date: 20080201
  Receipt Date: 20080121
  Transmission Date: 20080703
  Serious: Yes (Other)
  Sender: FDA-Public Use
  Company Number: US-PFIZER INC-2007106726

PATIENT
  Sex: Female
  Weight: 63.5 kg

DRUGS (6)
  1. CHANTIX [Suspect]
     Indication: EX-SMOKER
  2. DEPAKOTE [Suspect]
     Indication: BIPOLAR DISORDER
     Dosage: DAILY DOSE:2000MG
     Route: 048
     Dates: end: 20071217
  3. GEODON [Concomitant]
  4. LAMICTAL [Concomitant]
  5. ALL OTHER THERAPEUTIC PRODUCTS [Concomitant]
  6. ANXIOLYTICS [Concomitant]
     Indication: ANXIETY

REACTIONS (6)
  - AMNESIA [None]
  - ANXIETY [None]
  - DISTURBANCE IN ATTENTION [None]
  - IMPAIRED DRIVING ABILITY [None]
  - ROAD TRAFFIC ACCIDENT [None]
  - VISUAL DISTURBANCE [None]
